FAERS Safety Report 22337631 (Version 1)
Quarter: 2023Q2

REPORT INFORMATION
  Report Type: Spontaneous
  Country: CN (occurrence: None)
  Receive Date: 20230518
  Receipt Date: 20230518
  Transmission Date: 20230721
  Serious: Yes (Death, Other)
  Sender: FDA-Public Use
  Company Number: CN-ROCHE-3350838

PATIENT

DRUGS (4)
  1. RITUXIMAB [Suspect]
     Active Substance: RITUXIMAB
     Indication: Mantle cell lymphoma
     Dosage: DAY 1
     Route: 041
  2. VENETOCLAX [Suspect]
     Active Substance: VENETOCLAX
     Indication: Mantle cell lymphoma
     Route: 065
  3. LENALIDOMIDE [Concomitant]
     Active Substance: LENALIDOMIDE
     Indication: Mantle cell lymphoma
     Dosage: DAY 1~21
  4. ASPIRIN [Concomitant]
     Active Substance: ASPIRIN
     Indication: Mantle cell lymphoma
     Dosage: PER DAY
     Route: 048

REACTIONS (25)
  - Pulmonary embolism [Unknown]
  - Melanoma recurrent [Unknown]
  - Adenocarcinoma [Unknown]
  - Myelodysplastic syndrome [Unknown]
  - Metastasis [Fatal]
  - Discomfort [Unknown]
  - Platelet count decreased [Unknown]
  - Diarrhoea [Unknown]
  - Neutrophil count decreased [Unknown]
  - Anaemia [Unknown]
  - Febrile neutropenia [Unknown]
  - Tumour lysis syndrome [Unknown]
  - Hypokalaemia [Unknown]
  - White blood cell count decreased [Unknown]
  - Lymphocyte count decreased [Unknown]
  - Fatigue [Unknown]
  - Upper respiratory tract infection [Unknown]
  - Taste disorder [Unknown]
  - Nausea [Unknown]
  - Headache [Unknown]
  - Contusion [Unknown]
  - Constipation [Unknown]
  - Pruritus [Unknown]
  - Abdominal pain [Unknown]
  - Rash maculo-papular [Unknown]
